FAERS Safety Report 4745858-1 (Version None)
Quarter: 2005Q3

REPORT INFORMATION
  Report Type: 
  Country: None (occurrence: None)
  Receive Date: 20050816
  Receipt Date: 20050808
  Transmission Date: 20060218
  Serious: Yes (Death, Hospitalization, Other)
  Sender: FDA-Public Use
  Company Number: SE-ABBOTT-05P-150-0307707-00

PATIENT
  Age: 30 Year
  Sex: Female

DRUGS (14)
  1. FERROUS SULFATE TABLETS [Suspect]
     Indication: DRUG USE FOR UNKNOWN INDICATION
     Route: 048
  2. THIOPENTAL SODIUM [Concomitant]
     Indication: ANAESTHESIA
     Dosage: NOT REPORTED
  3. SUXAMETHONIUM CHLORIDE [Concomitant]
     Indication: ANAESTHESIA
     Dosage: NOT REPORTED
  4. N2O-OXYGEN [Concomitant]
     Indication: ANAESTHESIA
     Dosage: NOT REPORTED
  5. FENTANYL [Concomitant]
     Indication: ANAESTHESIA
     Dosage: NOT REPORTED
  6. PANCURONIUM BROMIDE [Concomitant]
     Indication: ANAESTHESIA
     Dosage: NOT REPORTED
  7. MORPHINE [Concomitant]
     Indication: ANALGESIC EFFECT
     Dosage: NOT REPORTED
  8. MORPHINE [Concomitant]
     Indication: SEDATION
  9. DIAZEPAM [Concomitant]
     Indication: ANALGESIC EFFECT
     Dosage: NOT REPORTED
  10. DIAZEPAM [Concomitant]
     Indication: SEDATION
  11. HALOPERIDOL [Concomitant]
     Indication: ANALGESIC EFFECT
     Dosage: NOT REPORTED
  12. HALOPERIDOL [Concomitant]
     Indication: SEDATION
  13. FLUPENTIXOL [Concomitant]
     Indication: ANALGESIC EFFECT
     Dosage: NOT REPORTED
  14. FLUPENTIXOL [Concomitant]
     Indication: SEDATION

REACTIONS (16)
  - ABDOMINAL PAIN [None]
  - BLOOD CREATININE INCREASED [None]
  - CARDIAC FAILURE [None]
  - COAGULOPATHY [None]
  - COMA [None]
  - CONVULSION [None]
  - DIARRHOEA [None]
  - HAEMATEMESIS [None]
  - HAEMORRHAGE [None]
  - HEPATIC NECROSIS [None]
  - HYPOVOLAEMIA [None]
  - METABOLIC ACIDOSIS [None]
  - METAL POISONING [None]
  - SOMNOLENCE [None]
  - TACHYCARDIA [None]
  - URINE OUTPUT DECREASED [None]
